FAERS Safety Report 10406364 (Version 3)
Quarter: 2014Q3

REPORT INFORMATION
  Report Type: Report from Study
  Country: US (occurrence: US)
  Receive Date: 20140825
  Receipt Date: 20140827
  Transmission Date: 20150326
  Serious: Yes (Disabling, Other)
  Sender: FDA-Public Use
  Company Number: US-ABBVIE-14K-163-1264636-00

PATIENT
  Age: 74 Year
  Sex: Male

DRUGS (13)
  1. HUMIRA [Suspect]
     Active Substance: ADALIMUMAB
     Dates: start: 20140716, end: 20140716
  2. ASACOL HD [Concomitant]
     Active Substance: MESALAMINE
     Indication: COLITIS ULCERATIVE
  3. PREDNISONE. [Suspect]
     Active Substance: PREDNISONE
     Dates: start: 2014
  4. ASACOL [Concomitant]
     Active Substance: MESALAMINE
     Indication: COLITIS ULCERATIVE
  5. CANASA [Concomitant]
     Active Substance: MESALAMINE
     Indication: COLITIS ULCERATIVE
     Route: 054
  6. RESTASIS [Concomitant]
     Active Substance: CYCLOSPORINE
     Indication: DRY EYE
  7. FISH OIL [Concomitant]
     Active Substance: FISH OIL
     Indication: DRY EYE
  8. HUMIRA [Suspect]
     Active Substance: ADALIMUMAB
     Indication: COLITIS ULCERATIVE
     Dates: start: 20140604, end: 20140604
  9. PREDNISONE. [Suspect]
     Active Substance: PREDNISONE
     Dates: start: 20140708
  10. PREDNISONE. [Suspect]
     Active Substance: PREDNISONE
     Dates: start: 2014
  11. PREDNISONE. [Suspect]
     Active Substance: PREDNISONE
     Indication: COLITIS ULCERATIVE
     Dates: start: 2014
  12. MULTIVITAMIN [Concomitant]
     Active Substance: VITAMINS
     Indication: PRODUCT USED FOR UNKNOWN INDICATION
  13. VITAMINS [Concomitant]
     Active Substance: VITAMINS
     Indication: VITAMIN SUPPLEMENTATION

REACTIONS (19)
  - Fatigue [Recovered/Resolved]
  - Respiratory tract congestion [Recovered/Resolved]
  - Pyrexia [Not Recovered/Not Resolved]
  - Blood glucose increased [Unknown]
  - Aspartate aminotransferase increased [Unknown]
  - Muscular weakness [Recovering/Resolving]
  - Chills [Not Recovered/Not Resolved]
  - Interstitial lung disease [Unknown]
  - Cardiomegaly [Unknown]
  - Protein total decreased [Unknown]
  - Spinal osteoarthritis [Unknown]
  - Lymph node calcification [Unknown]
  - Pain [Unknown]
  - Asthenia [Unknown]
  - Cough [Unknown]
  - Blood albumin decreased [Unknown]
  - Cardiac failure congestive [Recovered/Resolved]
  - Dyspnoea [Recovered/Resolved]
  - Balance disorder [Recovering/Resolving]

NARRATIVE: CASE EVENT DATE: 2014
